FAERS Safety Report 6233833-X (Version None)
Quarter: 2009Q2

REPORT INFORMATION
  Report Type: 
  Country: None (occurrence: None)
  Receive Date: 20090618
  Receipt Date: 20090310
  Transmission Date: 20091009
  Serious: No
  Sender: FDA-Public Use
  Company Number: A0772535A

PATIENT
  Age: 61 Year
  Sex: Male

DRUGS (9)
  1. PROMACTA [Suspect]
     Indication: IDIOPATHIC THROMBOCYTOPENIC PURPURA
     Dosage: 50MG PER DAY
     Route: 048
     Dates: start: 20090203
  2. WINRHO SD [Concomitant]
  3. STEROIDS [Concomitant]
  4. METOPROLOL SUCCINATE [Concomitant]
  5. ATACAND [Concomitant]
  6. ZOCOR [Concomitant]
  7. ASPIRIN [Concomitant]
  8. XANAX [Concomitant]
  9. BUTOTAL [Concomitant]

REACTIONS (4)
  - ABDOMINAL PAIN UPPER [None]
  - DRUG ADMINISTRATION ERROR [None]
  - DYSPEPSIA [None]
  - MUSCLE SPASMS [None]
